FAERS Safety Report 25899613 (Version 1)
Quarter: 2025Q4

REPORT INFORMATION
  Report Type: Spontaneous
  Country: EU (occurrence: EU)
  Receive Date: 20251009
  Receipt Date: 20251009
  Transmission Date: 20260117
  Serious: Yes (Hospitalization)
  Sender: AMGEN
  Company Number: None

PATIENT
  Age: 59 Year
  Sex: Female
  Weight: 65 kg

DRUGS (3)
  1. DENOSUMAB [Suspect]
     Active Substance: DENOSUMAB
     Indication: Metastases to bone
     Dosage: 120 MG/ MOIS
     Route: 058
     Dates: start: 20250822, end: 20250822
  2. IBRANCE [Suspect]
     Active Substance: PALBOCICLIB
     Indication: Breast cancer metastatic
     Dosage: 1ST COURSE: 125 MG/DAY FROM 25/07/25 TO 14/08/25. 2ND COURSE 100 MG/DAY: 28/08/2025 TO 09/09/2025 TH
     Route: 048
     Dates: start: 20250725, end: 20250909
  3. FASLODEX [Suspect]
     Active Substance: FULVESTRANT
     Indication: Breast cancer metastatic
     Dosage: 250 MG/DAY : D1 (25/07/2025), D15 (08/08/2025), D29 (22/08/2025)
     Route: 030
     Dates: start: 20250725, end: 20250922

REACTIONS (1)
  - Ischaemic stroke [Recovered/Resolved with Sequelae]

NARRATIVE: CASE EVENT DATE: 20250906
